FAERS Safety Report 7056092-7 (Version None)
Quarter: 2010Q4

REPORT INFORMATION
  Report Type: 
  Country: None (occurrence: None)
  Receive Date: 20101021
  Receipt Date: 20101014
  Transmission Date: 20110411
  Serious: Yes (Hospitalization, Other)
  Sender: FDA-Public Use
  Company Number: GB-TEVA-252278ISR

PATIENT
  Age: 76 Year
  Sex: Female

DRUGS (3)
  1. TRIMETHOPRIM [Suspect]
     Indication: URINARY TRACT INFECTION
     Route: 048
     Dates: start: 20101001, end: 20101003
  2. ACARBOSE [Suspect]
     Indication: DIABETES MELLITUS
     Route: 048
     Dates: start: 20100926, end: 20101004
  3. ROSUVASTATIN [Suspect]
     Indication: HYPERCHOLESTEROLAEMIA
     Route: 048
     Dates: end: 20101004

REACTIONS (3)
  - ABDOMINAL PAIN [None]
  - LIVER DISORDER [None]
  - LIVER FUNCTION TEST ABNORMAL [None]
